FAERS Safety Report 9370767 (Version 2)
Quarter: 2013Q3

REPORT INFORMATION
  Report Type: Spontaneous
  Country: US (occurrence: US)
  Receive Date: 20130626
  Receipt Date: 20130906
  Transmission Date: 20140515
  Serious: Yes (Other)
  Sender: FDA-Public Use
  Company Number: US-PFIZER INC-2013187499

PATIENT
  Sex: Male

DRUGS (3)
  1. ZOLOFT [Suspect]
     Indication: DEPRESSION
     Dosage: UNK
     Dates: start: 20100102
  2. XANAX [Suspect]
     Dosage: UNK
     Dates: start: 20100104
  3. XANAX [Suspect]
     Dosage: UNK

REACTIONS (10)
  - Major depression [Unknown]
  - Anxiety disorder [Unknown]
  - Mania [Unknown]
  - Psychotic disorder [Unknown]
  - Homicide [Unknown]
  - Cognitive disorder [Unknown]
  - Mental disorder [Unknown]
  - Affective disorder [Unknown]
  - Emotional disorder [Unknown]
  - Hypothyroidism [Unknown]
